FAERS Safety Report 11151445 (Version 2)
Quarter: 2015Q3

REPORT INFORMATION
  Report Type: Spontaneous
  Country: BR (occurrence: None)
  Receive Date: 20150528
  Receipt Date: 20150709
  Transmission Date: 20151125
  Serious: Yes (Other)
  Sender: FDA-Public Use
  Company Number: 2015-11392

PATIENT
  Age: 32 Year
  Sex: Female

DRUGS (2)
  1. EYLEA [Suspect]
     Active Substance: AFLIBERCEPT
     Indication: CHORIORETINOPATHY
  2. EYLEA [Suspect]
     Active Substance: AFLIBERCEPT
     Indication: PROPHYLAXIS

REACTIONS (9)
  - Off label use [None]
  - Retinal oedema [None]
  - Eye infection [None]
  - Product use issue [None]
  - Wrong technique in product usage process [None]
  - Visual acuity reduced [None]
  - Eye pain [None]
  - Product quality issue [None]
  - Endophthalmitis [None]
